FAERS Safety Report 4915900-3 (Version None)
Quarter: 2006Q1

REPORT INFORMATION
  Report Type: 
  Country: None (occurrence: None)
  Receive Date: 20060214
  Receipt Date: 20060201
  Transmission Date: 20060701
  Serious: Yes (Other)
  Sender: FDA-Public Use
  Company Number: 2005157630

PATIENT
  Age: 74 Year
  Sex: Male
  Weight: 71.6683 kg

DRUGS (7)
  1. ZITHROMAX [Suspect]
     Indication: BRONCHITIS ACUTE
     Dates: start: 20050617, end: 20050601
  2. LOVASTATIN [Concomitant]
  3. FUROSEMIDE [Concomitant]
  4. DIGOXIN [Concomitant]
  5. COREG [Concomitant]
  6. ASPIRIN [Concomitant]
  7. VITAMINS (VITAMINS) [Concomitant]

REACTIONS (2)
  - AGEUSIA [None]
  - ANOSMIA [None]
